FAERS Safety Report 9994541 (Version 3)
Quarter: 2014Q2

REPORT INFORMATION
  Report Type: Report from Study
  Country: CO (occurrence: CO)
  Receive Date: 20140311
  Receipt Date: 20140613
  Transmission Date: 20141212
  Serious: Yes (Hospitalization, Other)
  Sender: FDA-Public Use
  Company Number: CO-ROCHE-1362354

PATIENT
  Sex: Female

DRUGS (3)
  1. RANIBIZUMAB [Suspect]
     Indication: MACULAR DEGENERATION
     Route: 050
  2. LOSARTAN [Concomitant]
  3. INSULIN [Concomitant]

REACTIONS (3)
  - Hypertension [Unknown]
  - Diabetic coma [Recovering/Resolving]
  - Malnutrition [Recovering/Resolving]
